FAERS Safety Report 5690501-0 (Version None)
Quarter: 2008Q2

REPORT INFORMATION
  Report Type: 
  Country: None (occurrence: None)
  Receive Date: 20080401
  Receipt Date: 20040422
  Transmission Date: 20081010
  Serious: Yes (Death)
  Sender: FDA-Public Use
  Company Number: US-ROCHE-365486

PATIENT
  Age: 89 Year
  Sex: Female
  Weight: 73 kg

DRUGS (1)
  1. CAPECITABINE [Suspect]
     Indication: COLON CANCER
     Route: 065
     Dates: start: 20031201

REACTIONS (1)
  - DISEASE PROGRESSION [None]
